FAERS Safety Report 15495476 (Version 2)
Quarter: 2018Q4

REPORT INFORMATION
  Report Type: Report from Study
  Country: US (occurrence: US)
  Receive Date: 20181013
  Receipt Date: 20181114
  Transmission Date: 20190205
  Serious: No
  Sender: FDA-Public Use
  Company Number: PHEH2018US042855

PATIENT
  Sex: Female
  Weight: 36 kg

DRUGS (2)
  1. ILARIS [Suspect]
     Active Substance: CANAKINUMAB
     Dosage: 160 MG, Q4W
     Route: 058
  2. ILARIS [Suspect]
     Active Substance: CANAKINUMAB
     Indication: STILL^S DISEASE
     Dosage: 70 MG, EVERY 28 DAYS
     Route: 058

REACTIONS (2)
  - Pruritus [Unknown]
  - Incorrect dose administered [Unknown]
